FAERS Safety Report 5256040-6 (Version None)
Quarter: 2007Q1

REPORT INFORMATION
  Report Type: 
  Country: None (occurrence: None)
  Receive Date: 20070302
  Receipt Date: 20070302
  Transmission Date: 20070707
  Serious: No
  Sender: FDA-Public Use
  Company Number: None

PATIENT
  Age: 70 Year
  Sex: Male

DRUGS (20)
  1. LANTUS [Suspect]
     Indication: DIABETES MELLITUS
     Dosage: 50 UNITS SQ QAM 60 UNITS SQ QPM
     Route: 058
     Dates: start: 20060919, end: 20060921
  2. AVAPRO [Concomitant]
  3. AMBIEN [Concomitant]
  4. ASPIRIN [Concomitant]
  5. COREG [Concomitant]
  6. COUMADIN [Concomitant]
  7. ALDACTONE [Concomitant]
  8. CRESTOR [Concomitant]
  9. LASIX [Concomitant]
  10. IMDUR [Concomitant]
  11. LEVOTHYROXINE SODIUM [Concomitant]
  12. REGLAN [Concomitant]
  13. VICODIN [Concomitant]
  14. NEXIUM [Concomitant]
  15. LOMOTIL [Concomitant]
  16. NITROGLYCERIN [Concomitant]
  17. PLAVIX [Concomitant]
  18. PEPCID [Concomitant]
  19. RANEXA [Concomitant]
  20. ZOLOFT [Concomitant]

REACTIONS (3)
  - BLOOD GLUCOSE DECREASED [None]
  - TREMOR [None]
  - UNRESPONSIVE TO STIMULI [None]
